FAERS Safety Report 9940732 (Version 2)
Quarter: 2014Q2

REPORT INFORMATION
  Report Type: Report from Study
  Country: US (occurrence: US)
  Receive Date: 20140303
  Receipt Date: 20140421
  Transmission Date: 20141212
  Serious: Yes (Other)
  Sender: FDA-Public Use
  Company Number: US-JNJFOC-20140215929

PATIENT
  Age: 59 Year
  Sex: Male
  Weight: 88.45 kg

DRUGS (27)
  1. REMICADE [Suspect]
     Indication: RHEUMATOID ARTHRITIS
     Route: 042
  2. REMICADE [Suspect]
     Indication: RHEUMATOID ARTHRITIS
     Route: 042
     Dates: start: 20140313
  3. REMICADE [Suspect]
     Indication: CROHN^S DISEASE
     Route: 042
  4. REMICADE [Suspect]
     Indication: CROHN^S DISEASE
     Route: 042
     Dates: start: 20140313
  5. MULTIVITAMINS [Concomitant]
     Indication: CROHN^S DISEASE
     Route: 048
  6. FOLIC ACID [Concomitant]
     Indication: CROHN^S DISEASE
     Route: 048
  7. CALCIUM CARBONATE [Concomitant]
     Indication: CROHN^S DISEASE
     Dosage: CA 500 MG, ONE TABLET AT BED TIME
     Route: 048
  8. OMEPRAZOLE [Concomitant]
     Indication: ULCER
     Route: 048
  9. SULFASALAZINE [Concomitant]
     Indication: RHEUMATOID ARTHRITIS
     Dosage: 2 TABLETS, 2 TIMES A DAY
     Route: 048
  10. HYDROXYCHLOROQUINE [Concomitant]
     Indication: RHEUMATOID ARTHRITIS
     Dosage: 1 TABLET
     Route: 048
  11. WELLBUTRIN [Concomitant]
     Indication: DEPRESSION
     Dosage: 1 TABLET
     Route: 048
  12. TRAZODONE [Concomitant]
     Indication: DEPRESSION
     Dosage: 1 TABLET, PM
     Route: 048
  13. DONEPEZIL [Concomitant]
     Indication: DEMENTIA ALZHEIMER^S TYPE
     Dosage: 1 TABLET, AM
     Route: 048
  14. DESLORATADINE [Concomitant]
     Indication: MULTIPLE ALLERGIES
     Dosage: 1 TABLET, AM
     Route: 048
  15. VERAMYST [Concomitant]
     Indication: MULTIPLE ALLERGIES
     Dosage: 2 SPRAYS EACH NOSTRIL, AM
     Route: 048
  16. DOC-Q-LACE [Concomitant]
     Indication: CONSTIPATION
     Dosage: 1 CAPSULE
     Route: 048
  17. XARELTO [Concomitant]
     Indication: CARDIAC FAILURE CONGESTIVE
     Dosage: AM
     Route: 048
  18. CARVEDILOL [Concomitant]
     Indication: CARDIAC FAILURE CONGESTIVE
     Dosage: ONE TABLET
     Route: 048
  19. EXALGO [Concomitant]
     Indication: PAIN
     Dosage: AM
     Route: 048
  20. LYRICA [Concomitant]
     Indication: PAIN
     Dosage: AM
     Route: 048
  21. LEVETIRACETAM [Concomitant]
     Indication: PAIN
     Dosage: 1 TABLET
     Route: 048
  22. BACLOFEN [Concomitant]
     Indication: PAIN
     Dosage: 1 TABLET 1 TO 3 TIMES A DAY
     Route: 048
  23. HYDROMORPHONE [Concomitant]
     Indication: PAIN
     Dosage: 1 TABLET 1 TO 3 TIMES A DAY AS NEEDED FOR BREAKTHROUGH PAIN
     Route: 048
  24. PROVIGIL [Concomitant]
     Indication: SLEEP APNOEA SYNDROME
     Dosage: 1 TABLET IN AM,??1 TABLET IN NOON
     Route: 048
  25. ROPINIROLE HYDROCHLORIDE [Concomitant]
     Indication: SLEEP APNOEA SYNDROME
     Dosage: 1 TABLET AT 1 PM,1 TABLET T BED TIME FOR RLS
     Route: 048
  26. VESICARE [Concomitant]
     Indication: INCONTINENCE
     Dosage: AM
     Route: 048
  27. FLUOCINONIDE [Concomitant]
     Indication: PSORIASIS
     Dosage: APPLY TO AFFECTED AREAS TWICE DAILY .??KNEES ELBOWS AND RIGHT SHOULDER
     Route: 048

REACTIONS (5)
  - Intervertebral disc degeneration [Recovering/Resolving]
  - Osteoarthritis [Recovering/Resolving]
  - Portal vein thrombosis [Recovered/Resolved]
  - Application site abscess [Recovering/Resolving]
  - Post procedural infection [Recovering/Resolving]
